FAERS Safety Report 8022234-X (Version None)
Quarter: 2011Q4

REPORT INFORMATION
  Report Type: 
  Country: None (occurrence: None)
  Receive Date: 20111230
  Receipt Date: 20111217
  Transmission Date: 20120403
  Serious: Yes (Hospitalization)
  Sender: FDA-Public Use
  Company Number: 2011AP003087

PATIENT
  Age: 51 Year
  Sex: Female

DRUGS (4)
  1. PROPOXYPHENE HYDROCHLORIDE [Concomitant]
  2. DIPHENHYDRAMINE HCL [Suspect]
     Indication: PRODUCT USED FOR UNKNOWN INDICATION
  3. VENLAFAXINE [Concomitant]
  4. BUPROPION HYDROCHLORIDE [Suspect]
     Indication: PRODUCT USED FOR UNKNOWN INDICATION

REACTIONS (25)
  - ELECTROCARDIOGRAM QRS COMPLEX PROLONGED [None]
  - SEPSIS [None]
  - THROMBOCYTOPENIA [None]
  - RENAL TUBULAR NECROSIS [None]
  - DRUG LEVEL INCREASED [None]
  - HEPATOTOXICITY [None]
  - HEPATIC STEATOSIS [None]
  - CARDIOGENIC SHOCK [None]
  - VENTRICULAR TACHYCARDIA [None]
  - RENAL FAILURE ACUTE [None]
  - ACUTE RESPIRATORY DISTRESS SYNDROME [None]
  - LETHARGY [None]
  - HEPATIC FAILURE [None]
  - HAEMODIALYSIS [None]
  - POTENTIATING DRUG INTERACTION [None]
  - CARDIOTOXICITY [None]
  - MENTAL IMPAIRMENT [None]
  - COLITIS [None]
  - VENTRICULAR EXTRASYSTOLES [None]
  - GRAND MAL CONVULSION [None]
  - HYPOTENSION [None]
  - PNEUMONIA ASPIRATION [None]
  - GASTROINTESTINAL HAEMORRHAGE [None]
  - PUPILLARY REFLEX IMPAIRED [None]
  - SYSTOLIC DYSFUNCTION [None]
